FAERS Safety Report 11464292 (Version 1)
Quarter: 2015Q3

REPORT INFORMATION
  Report Type: Spontaneous
  Country: US (occurrence: US)
  Receive Date: 20150831
  Receipt Date: 20150831
  Transmission Date: 20151125
  Serious: No
  Sender: FDA-Public Use
  Company Number: US-ELI_LILLY_AND_COMPANY-US201107008047

PATIENT
  Age: 66 Year
  Sex: Male

DRUGS (1)
  1. CYMBALTA [Suspect]
     Active Substance: DULOXETINE HYDROCHLORIDE
     Indication: DEPRESSION
     Dosage: 30 MG, QD
     Dates: start: 20110623

REACTIONS (15)
  - Memory impairment [Not Recovered/Not Resolved]
  - Drug dose omission [Recovered/Resolved]
  - Belligerence [Unknown]
  - Confusional state [Unknown]
  - Fatigue [Unknown]
  - Anger [Unknown]
  - Feeling abnormal [Unknown]
  - Listless [Unknown]
  - Inappropriate affect [Unknown]
  - Abulia [Unknown]
  - Abnormal behaviour [Unknown]
  - Dyscalculia [Unknown]
  - Somnolence [Unknown]
  - Hypoaesthesia [Recovered/Resolved]
  - Drug withdrawal syndrome [Unknown]

NARRATIVE: CASE EVENT DATE: 201106
